FAERS Safety Report 4331050-1 (Version None)
Quarter: 2004Q1

REPORT INFORMATION
  Report Type: 
  Country: None (occurrence: None)
  Receive Date: 20040331
  Receipt Date: 20040324
  Transmission Date: 20041129
  Serious: Yes (Hospitalization)
  Sender: FDA-Public Use
  Company Number: 2004UW04810

PATIENT
  Age: 89 Year
  Sex: Male
  Weight: 67.586 kg

DRUGS (3)
  1. PRILOSEC [Suspect]
     Dosage: 20 MG DAILY PO
     Route: 048
  2. PRILOSEC [Suspect]
     Indication: HIATUS HERNIA
     Dosage: 20 MG DAILY PO
     Route: 048
     Dates: start: 20031101, end: 20040111
  3. ALOPURINOL [Concomitant]

REACTIONS (13)
  - FAECES DISCOLOURED [None]
  - GASTROINTESTINAL HAEMORRHAGE [None]
  - HAEMATOCRIT ABNORMAL [None]
  - HAEMATOLOGY TEST ABNORMAL [None]
  - HAEMOGLOBIN ABNORMAL [None]
  - INTESTINAL POLYP [None]
  - JOINT STIFFNESS [None]
  - LYMPHOCYTE MORPHOLOGY ABNORMAL [None]
  - MONOCYTE COUNT ABNORMAL [None]
  - MUSCULOSKELETAL STIFFNESS [None]
  - PLATELET DISORDER [None]
  - RED BLOOD CELL COUNT ABNORMAL [None]
  - WEIGHT DECREASED [None]
